FAERS Safety Report 7018161-7 (Version None)
Quarter: 2010Q3

REPORT INFORMATION
  Report Type: 
  Country: None (occurrence: None)
  Receive Date: 20100927
  Receipt Date: 20100927
  Transmission Date: 20110219
  Serious: Yes (Other)
  Sender: FDA-Public Use
  Company Number: None

PATIENT
  Age: 64 Year
  Sex: Male
  Weight: 81.6475 kg

DRUGS (2)
  1. VIAGRA [Suspect]
     Indication: ERECTILE DYSFUNCTION
     Dosage: 75 WEEKLY PO, ONCE PER WEEK, ONCE/2
     Route: 048
     Dates: start: 19920119, end: 20100924
  2. CIALIS [Suspect]
     Indication: ERECTILE DYSFUNCTION
     Dosage: 20 WEEKLY PO, ONCE PER WEEK, ONCE/2
     Route: 048
     Dates: start: 19980119, end: 20100924

REACTIONS (1)
  - BLINDNESS [None]
